FAERS Safety Report 7886960-5 (Version None)
Quarter: 2011Q4

REPORT INFORMATION
  Report Type: 
  Country: None (occurrence: None)
  Receive Date: 20111102
  Receipt Date: 20110713
  Transmission Date: 20120403
  Serious: No
  Sender: FDA-Public Use
  Company Number: US-AMGEN-USASP2011035605

PATIENT
  Age: 38 Year
  Sex: Female
  Weight: 94 kg

DRUGS (7)
  1. CELEXA [Concomitant]
     Dosage: 10 MG, UNK
  2. ABILIFY [Concomitant]
     Dosage: 10 MG, UNK
  3. ENBREL [Suspect]
     Indication: PRODUCT USED FOR UNKNOWN INDICATION
     Dosage: 50 MG, QWK
     Route: 058
  4. AMBIEN [Concomitant]
     Dosage: 10 MG, UNK
  5. LORATADINE [Concomitant]
     Dosage: UNK
  6. NORCO [Concomitant]
     Dosage: UNK
  7. METHOTREXATE [Concomitant]
     Dosage: 2.5 MG, UNK

REACTIONS (2)
  - NAUSEA [None]
  - HEADACHE [None]
